FAERS Safety Report 6688099-3 (Version None)
Quarter: 2010Q2

REPORT INFORMATION
  Report Type: 
  Country: None (occurrence: None)
  Receive Date: 20100412
  Receipt Date: 20100127
  Transmission Date: 20101027
  Serious: No
  Sender: FDA-Public Use
  Company Number: 1000011514

PATIENT
  Age: 76 Year
  Sex: Female

DRUGS (5)
  1. BYSTOLIC [Suspect]
     Indication: HYPERTENSION
     Dosage: 5 MG (5 MG, 1 IN 1 D), ORAL
     Route: 048
     Dates: start: 20090301, end: 20100119
  2. BYSTOLIC [Suspect]
     Indication: HYPERTENSION
     Dosage: 10 MG (10 MG, 1 IN 1 D), ORAL : 5 MG (5 MG, 1 IN 1 D), ORAL
     Route: 048
     Dates: start: 20100120, end: 20100122
  3. BYSTOLIC [Suspect]
     Indication: HYPERTENSION
     Dosage: 10 MG (10 MG, 1 IN 1 D), ORAL : 5 MG (5 MG, 1 IN 1 D), ORAL
     Route: 048
     Dates: start: 20100123
  4. LASIX [Concomitant]
  5. CALCIUM CHANNEL BLOCKER [Concomitant]

REACTIONS (3)
  - DYSPNOEA [None]
  - FATIGUE [None]
  - JOINT SWELLING [None]
